FAERS Safety Report 11037511 (Version 1)
Quarter: 2015Q2

REPORT INFORMATION
  Report Type: Spontaneous
  Country: US (occurrence: US)
  Receive Date: 20150416
  Receipt Date: 20150416
  Transmission Date: 20150821
  Serious: No
  Sender: FDA-Public Use
  Company Number: US-TEVA-552110USA

PATIENT
  Sex: Female

DRUGS (1)
  1. PROVIGIL [Suspect]
     Active Substance: MODAFINIL
     Indication: NARCOLEPSY
     Dosage: 400 MILLIGRAM DAILY;
     Route: 065

REACTIONS (4)
  - Hyperhidrosis [Unknown]
  - Skin odour abnormal [Unknown]
  - Off label use [Unknown]
  - Paranoia [Unknown]

NARRATIVE: CASE EVENT DATE: 2006
